FAERS Safety Report 6172693-2 (Version None)
Quarter: 2009Q2

REPORT INFORMATION
  Report Type: 
  Country: None (occurrence: None)
  Receive Date: 20090430
  Receipt Date: 20090427
  Transmission Date: 20091009
  Serious: Yes (Death)
  Sender: FDA-Public Use
  Company Number: CH-JNJFOC-20090406084

PATIENT
  Age: 47 Year
  Sex: Female

DRUGS (5)
  1. HALDOL [Suspect]
     Indication: SCHIZOPHRENIA
     Route: 048
  2. LORAZEPAM [Suspect]
     Route: 048
  3. LORAZEPAM [Suspect]
     Indication: DRUG USE FOR UNKNOWN INDICATION
     Route: 048
  4. ZYPREXA [Suspect]
     Indication: DRUG USE FOR UNKNOWN INDICATION
     Route: 048
  5. AKINETON [Concomitant]
     Route: 048

REACTIONS (1)
  - COMPLETED SUICIDE [None]
